FAERS Safety Report 5588523-3 (Version None)
Quarter: 2008Q1

REPORT INFORMATION
  Report Type: 
  Country: None (occurrence: None)
  Receive Date: 20080111
  Receipt Date: 20080107
  Transmission Date: 20080703
  Serious: Yes (Death)
  Sender: FDA-Public Use
  Company Number: JP-ASTRAZENECA-2008AP00211

PATIENT
  Age: 41 Year
  Sex: Female
  Weight: 90 kg

DRUGS (7)
  1. NAROPIN [Suspect]
     Indication: EPIDURAL ANAESTHESIA
     Route: 008
     Dates: start: 20070605, end: 20070605
  2. DIPRIVAN [Suspect]
     Indication: SEDATION
     Route: 041
     Dates: start: 20070605, end: 20070605
  3. ATONIN-O [Concomitant]
     Route: 042
     Dates: start: 20070604, end: 20070605
  4. UNKNOWNDRUG [Concomitant]
     Route: 041
     Dates: start: 20070604, end: 20070605
  5. XYLOCAINE [Concomitant]
     Route: 065
     Dates: start: 20070605, end: 20070605
  6. ISODINE [Concomitant]
     Route: 003
     Dates: start: 20070605, end: 20070605
  7. XYLOCAINE SYRINGE [Concomitant]
     Route: 065
     Dates: start: 20070605, end: 20070605

REACTIONS (1)
  - DEATH [None]
